FAERS Safety Report 25641678 (Version 1)
Quarter: 2025Q3

REPORT INFORMATION
  Report Type: Spontaneous
  Country: US (occurrence: US)
  Receive Date: 20250804
  Receipt Date: 20250804
  Transmission Date: 20251021
  Serious: Yes (Other)
  Sender: NOVARTIS
  Company Number: US-002147023-NVSC2025US120314

PATIENT
  Sex: Female

DRUGS (1)
  1. KESIMPTA [Suspect]
     Active Substance: OFATUMUMAB
     Indication: Multiple sclerosis
     Route: 065

REACTIONS (6)
  - Multiple sclerosis relapse [Unknown]
  - Balance disorder [Unknown]
  - Mobility decreased [Unknown]
  - Visual impairment [Unknown]
  - Fall [Unknown]
  - Drug ineffective [Unknown]
